FAERS Safety Report 22033232 (Version 1)
Quarter: 2023Q1

REPORT INFORMATION
  Report Type: Spontaneous
  Country: US (occurrence: None)
  Receive Date: 20230222
  Receipt Date: 20230222
  Transmission Date: 20230417
  Serious: Yes (Hospitalization, Disabling, Other)
  Sender: FDA-Public Use
  Company Number: None

PATIENT
  Age: 54 Year
  Sex: Male
  Weight: 95.4 kg

DRUGS (1)
  1. MOUNJARO [Suspect]
     Active Substance: TIRZEPATIDE

REACTIONS (8)
  - Orthostatic hypotension [None]
  - Fall [None]
  - Therapy cessation [None]
  - Limb injury [None]
  - Wound infection [None]
  - Toe amputation [None]
  - General physical health deterioration [None]
  - Malnutrition [None]

NARRATIVE: CASE EVENT DATE: 20230218
